FAERS Safety Report 7547603-3 (Version None)
Quarter: 2011Q2

REPORT INFORMATION
  Report Type: 
  Country: None (occurrence: None)
  Receive Date: 20110614
  Receipt Date: 20110602
  Transmission Date: 20111010
  Serious: Yes (Life-Threatening, Hospitalization, Disabling)
  Sender: FDA-Public Use
  Company Number: US-BAYER-2011-048142

PATIENT
  Age: 35 Year
  Sex: Female

DRUGS (3)
  1. AVELOX [Suspect]
     Dosage: UNK
     Route: 048
     Dates: start: 20110601
  2. SYNTHROID [Concomitant]
  3. AVELOX [Suspect]
     Dosage: 400 MG, ONCE
     Route: 048
     Dates: start: 20110101, end: 20110101

REACTIONS (9)
  - UNEVALUABLE EVENT [None]
  - DYSPNOEA [None]
  - BURNING SENSATION [None]
  - CHEST DISCOMFORT [None]
  - DIZZINESS [None]
  - PARAESTHESIA [None]
  - HYPOAESTHESIA [None]
  - GAIT DISTURBANCE [None]
  - SENSATION OF HEAVINESS [None]
